FAERS Safety Report 8238355-2 (Version None)
Quarter: 2012Q1

REPORT INFORMATION
  Report Type: 
  Country: None (occurrence: None)
  Receive Date: 20120326
  Receipt Date: 20120312
  Transmission Date: 20120608
  Serious: Yes (Hospitalization, Other)
  Sender: FDA-Public Use
  Company Number: 7119062

PATIENT
  Age: 46 Year
  Sex: Female

DRUGS (11)
  1. DECADRON (DEXAMATHASONE) [Concomitant]
  2. ISOFLAVONE (GLUCINE MAX EXTRACT) [Concomitant]
  3. CRESTOR [Concomitant]
  4. ATENOLOL [Concomitant]
  5. LEVOTHYROXINE SODIUM [Suspect]
     Indication: HYPOTHYROIDISM
     Dosage: 1 DF (75 MCG, 1 IN 1 D)
     Dates: start: 20111001
  6. DIAMOX [Concomitant]
  7. RELIFIT ALL OTHER THERAPEUTIC PRODUCTS) [Concomitant]
  8. GARDENAL (PHENOBARBITAL) [Concomitant]
  9. PANTOPRAZOLE [Concomitant]
  10. PHENYTOIN [Concomitant]
  11. DIPIRONE (DIPYRONE) (METAMIZOLE SODIUM) [Concomitant]

REACTIONS (4)
  - HAEMORRHAGIC STROKE [None]
  - HAEMANGIOMA [None]
  - STRESS [None]
  - WEIGHT INCREASED [None]
